FAERS Safety Report 5857510-X (Version None)
Quarter: 2008Q3

REPORT INFORMATION
  Report Type: 
  Country: None (occurrence: None)
  Receive Date: 20080818
  Receipt Date: 20080716
  Transmission Date: 20090109
  Serious: No
  Sender: FDA-Public Use
  Company Number: TPA2008A01131

PATIENT
  Age: 5 Decade
  Sex: Male

DRUGS (1)
  1. ROZEREM [Suspect]
     Indication: INSOMNIA
     Dosage: 8 MG, 1 DOSE, AT BEDTIME, PER ORAL
     Route: 048
     Dates: start: 20080701, end: 20080701

REACTIONS (3)
  - DIZZINESS [None]
  - HYPERHIDROSIS [None]
  - NAUSEA [None]
